FAERS Safety Report 11492103 (Version 1)
Quarter: 2015Q3

REPORT INFORMATION
  Report Type: Report from Study
  Country: BR (occurrence: BR)
  Receive Date: 20150910
  Receipt Date: 20150910
  Transmission Date: 20151125
  Serious: Yes (Other)
  Sender: FDA-Public Use
  Company Number: PHHY2015BR109676

PATIENT
  Sex: Female
  Weight: 61 kg

DRUGS (1)
  1. ACLASTA [Suspect]
     Active Substance: ZOLEDRONIC ACID
     Indication: OSTEOPOROSIS
     Dosage: 1 DF, Q12MO
     Route: 065
     Dates: start: 20140828

REACTIONS (3)
  - Uterine polyp [Recovering/Resolving]
  - Haemorrhage [Recovering/Resolving]
  - Pain [Recovering/Resolving]
